FAERS Safety Report 12631116 (Version 2)
Quarter: 2016Q3

REPORT INFORMATION
  Report Type: Spontaneous
  Country: US (occurrence: US)
  Receive Date: 20160808
  Receipt Date: 20160808
  Transmission Date: 20161109
  Serious: No
  Sender: FDA-Public Use
  Company Number: US-BEH-2015052323

PATIENT
  Sex: Female
  Weight: 76 kg

DRUGS (20)
  1. EPIPEN [Concomitant]
     Active Substance: EPINEPHRINE
  2. HUMALOG [Concomitant]
     Active Substance: INSULIN LISPRO
  3. LIPITOR [Concomitant]
     Active Substance: ATORVASTATIN CALCIUM
  4. DIPHENHYDRAMINE. [Concomitant]
     Active Substance: DIPHENHYDRAMINE
  5. ACETAMINOPHEN. [Concomitant]
     Active Substance: ACETAMINOPHEN
  6. EFFEXOR [Concomitant]
     Active Substance: VENLAFAXINE HYDROCHLORIDE
  7. KLONOPIN [Concomitant]
     Active Substance: CLONAZEPAM
  8. LASIX [Concomitant]
     Active Substance: FUROSEMIDE
  9. PREDNISONE. [Concomitant]
     Active Substance: PREDNISONE
  10. MULTIVITAMINS [Concomitant]
     Active Substance: VITAMINS
  11. ALDACATONE [Concomitant]
  12. LYRICA [Concomitant]
     Active Substance: PREGABALIN
  13. PROVIGIL [Concomitant]
     Active Substance: MODAFINIL
  14. REFRESH OPTIVE DROPS [Concomitant]
  15. HIZENTRA [Suspect]
     Active Substance: HUMAN IMMUNOGLOBULIN G
     Indication: IMMUNODEFICIENCY COMMON VARIABLE
     Route: 058
  16. NYSTATIN. [Concomitant]
     Active Substance: NYSTATIN
  17. CYCLOBENZAPRINE [Concomitant]
     Active Substance: CYCLOBENZAPRINE
  18. IPRATROPIUM [Concomitant]
     Active Substance: IPRATROPIUM
  19. OXYGEN. [Concomitant]
     Active Substance: OXYGEN
  20. LANTUS [Concomitant]
     Active Substance: INSULIN GLARGINE

REACTIONS (2)
  - Influenza like illness [Unknown]
  - Fatigue [Unknown]
